FAERS Safety Report 4364007-5 (Version None)
Quarter: 2004Q2

REPORT INFORMATION
  Report Type: 
  Country: None (occurrence: None)
  Receive Date: 20040519
  Receipt Date: 20040428
  Transmission Date: 20050107
  Serious: Yes (Other)
  Sender: FDA-Public Use
  Company Number: CHNY2003CA01160

PATIENT
  Age: 22 Year
  Sex: Female

DRUGS (3)
  1. NICOTINE [Suspect]
     Indication: SMOKING CESSATION THERAPY
     Dosage: 21 MG, QD TRANSDERMAL
     Route: 062
     Dates: start: 20030928, end: 20030929
  2. MATERNA (VITAMINS NOS) [Concomitant]
  3. DICLECTIN [Concomitant]

REACTIONS (12)
  - APPLICATION SITE BURNING [None]
  - APPLICATION SITE DISCOLOURATION [None]
  - APPLICATION SITE ERYTHEMA [None]
  - APPLICATION SITE PAIN [None]
  - APPLICATION SITE PRURITUS [None]
  - APPLICATION SITE REACTION [None]
  - APPLICATION SITE SCAR [None]
  - APPLICATION SITE VESICLES [None]
  - APPLICATION SITE WARMTH [None]
  - DRUG EXPOSURE DURING PREGNANCY [None]
  - SCAB [None]
  - WOUND SECRETION [None]
